FAERS Safety Report 6690597-3 (Version None)
Quarter: 2010Q2

REPORT INFORMATION
  Report Type: 
  Country: None (occurrence: None)
  Receive Date: 20100421
  Receipt Date: 20100413
  Transmission Date: 20101027
  Serious: Yes (Hospitalization)
  Sender: FDA-Public Use
  Company Number: B0647048A

PATIENT
  Age: 14 Year
  Sex: Female

DRUGS (2)
  1. LAMICTAL [Suspect]
     Indication: EPILEPSY
     Route: 065
     Dates: start: 20091126, end: 20100127
  2. DEPAKENE [Concomitant]
     Indication: EPILEPSY
     Route: 065
     Dates: start: 20080101

REACTIONS (5)
  - DELIRIUM [None]
  - DEPRESSED MOOD [None]
  - DISTURBANCE IN ATTENTION [None]
  - HALLUCINATION, AUDITORY [None]
  - SCHIZOPHRENIA [None]
